FAERS Safety Report 8204405-2 (Version None)
Quarter: 2012Q1

REPORT INFORMATION
  Report Type: 
  Country: None (occurrence: None)
  Receive Date: 20120313
  Receipt Date: 20120313
  Transmission Date: 20120608
  Serious: Yes (Hospitalization)
  Sender: FDA-Public Use
  Company Number: None

PATIENT
  Age: 89 Year
  Sex: Female

DRUGS (12)
  1. WARFARIN SODIUM [Suspect]
     Indication: POSTOPERATIVE CARE
     Dosage: 1.0 MG
     Route: 048
  2. WARFARIN SODIUM [Suspect]
     Indication: ORTHOPEDIC PROCEDURE
     Dosage: 1.0 MG
     Route: 048
  3. PRAVASTATIN [Concomitant]
  4. CARDIZEM [Concomitant]
  5. SENN W/DOCUSATE [Concomitant]
  6. PERCOCET [Concomitant]
  7. REMERON [Concomitant]
  8. LISINOPRIL [Concomitant]
  9. BENICAR [Concomitant]
  10. LANTUS [Concomitant]
  11. ARICEPT [Concomitant]
  12. PHENERGAN [Concomitant]

REACTIONS (2)
  - HAEMATEMESIS [None]
  - ANAEMIA [None]
